FAERS Safety Report 4641749-5 (Version None)
Quarter: 2005Q2

REPORT INFORMATION
  Report Type: 
  Country: None (occurrence: None)
  Receive Date: 20050421
  Receipt Date: 20050407
  Transmission Date: 20051028
  Serious: Yes (Other)
  Sender: FDA-Public Use
  Company Number: 2005056728

PATIENT
  Age: 54 Year
  Sex: Female
  Weight: 86.1834 kg

DRUGS (4)
  1. CELEBREX [Suspect]
     Indication: ARTHRALGIA
     Dosage: 200 MG (200 MG, 1 IN 1 D), ORAL
     Route: 048
  2. ALENDRONATE SODIUM [Concomitant]
  3. PROVELLA-14 (ESTROGENS CONJUGATED, MEDROXYPROGESTORENE ACETATE) [Concomitant]
  4. ACYCLOVIR [Concomitant]

REACTIONS (6)
  - ARTHRITIS [None]
  - DRY SKIN [None]
  - DYSPEPSIA [None]
  - EYE DISCHARGE [None]
  - INTERVERTEBRAL DISC OPERATION [None]
  - RASH MACULAR [None]
